FAERS Safety Report 10204139 (Version 3)
Quarter: 2015Q4

REPORT INFORMATION
  Report Type: Report from Study
  Country: US (occurrence: US)
  Receive Date: 20140529
  Receipt Date: 20151218
  Transmission Date: 20160304
  Serious: Yes (Death, Other)
  Sender: FDA-Public Use
  Company Number: US-ASTELLAS-2014US005981

PATIENT
  Age: 44 Year
  Sex: Male

DRUGS (10)
  1. AVASTIN [Suspect]
     Active Substance: BEVACIZUMAB
     Indication: GLIOBLASTOMA MULTIFORME
     Route: 042
  2. ERLOTINIB [Suspect]
     Active Substance: ERLOTINIB
     Indication: GLIOBLASTOMA MULTIFORME
     Route: 048
  3. PAZOPANIB [Suspect]
     Active Substance: PAZOPANIB
     Indication: GLIOBLASTOMA MULTIFORME
     Route: 048
  4. PAZOPANIB [Suspect]
     Active Substance: PAZOPANIB
     Route: 048
     Dates: start: 20130320
  5. DASATINIB [Concomitant]
     Active Substance: DASATINIB
     Indication: PRODUCT USED FOR UNKNOWN INDICATION
     Route: 048
  6. CABOZANTINIB [Concomitant]
     Active Substance: CABOZANTINIB
     Indication: PRODUCT USED FOR UNKNOWN INDICATION
     Route: 048
  7. VORINOSTAT [Concomitant]
     Active Substance: VORINOSTAT
     Indication: PRODUCT USED FOR UNKNOWN INDICATION
     Route: 048
  8. ERLOTINIB [Suspect]
     Active Substance: ERLOTINIB
     Indication: BRAIN NEOPLASM MALIGNANT
  9. SODIUM PHENYLBUTYRATE. [Suspect]
     Active Substance: SODIUM PHENYLBUTYRATE
     Indication: GENERALISED TONIC-CLONIC SEIZURE
     Route: 048
  10. EVEROLIMUS [Suspect]
     Active Substance: EVEROLIMUS
     Indication: GLIOBLASTOMA MULTIFORME
     Route: 048
     Dates: start: 2013

REACTIONS (8)
  - Malignant neoplasm progression [Fatal]
  - Generalised tonic-clonic seizure [Unknown]
  - Hemianopia homonymous [Unknown]
  - Aphasia [Unknown]
  - Paresis [Unknown]
  - Off label use [Unknown]
  - Brain neoplasm [Unknown]
  - Neoplasm recurrence [Unknown]

NARRATIVE: CASE EVENT DATE: 2013
